FAERS Safety Report 8502088-5 (Version None)
Quarter: 2012Q3

REPORT INFORMATION
  Report Type: 
  Country: None (occurrence: None)
  Receive Date: 20120711
  Receipt Date: 20120706
  Transmission Date: 20120928
  Serious: Yes (Hospitalization, Other)
  Sender: FDA-Public Use
  Company Number: US-AMGEN-USASP2012042011

PATIENT
  Age: 43 Year
  Sex: Male

DRUGS (3)
  1. ENBREL [Suspect]
     Indication: PSORIATIC ARTHROPATHY
     Dosage: 50 MG, QWK
     Dates: start: 19980101
  2. HUMIRA [Concomitant]
     Dosage: UNK
  3. PREDNISONE [Concomitant]
     Dosage: UNK

REACTIONS (7)
  - LUNG DISORDER [None]
  - PSORIATIC ARTHROPATHY [None]
  - WEIGHT INCREASED [None]
  - MUSCULOSKELETAL STIFFNESS [None]
  - SARCOIDOSIS [None]
  - PNEUMOTHORAX [None]
  - PSORIASIS [None]
